FAERS Safety Report 9568029 (Version 2)
Quarter: 2013Q3

REPORT INFORMATION
  Report Type: Spontaneous
  Country: US (occurrence: US)
  Receive Date: 20130930
  Receipt Date: 20130930
  Transmission Date: 20140515
  Serious: No
  Sender: FDA-Public Use
  Company Number: US-AMGEN-USASP2013054535

PATIENT
  Age: 63 Year
  Sex: Male
  Weight: 68.02 kg

DRUGS (6)
  1. ENBREL [Suspect]
     Indication: PRODUCT USED FOR UNKNOWN INDICATION
     Dosage: 50 MG, QWK
     Route: 058
  2. PREDNISONE [Concomitant]
     Dosage: 5 MG, UNK
  3. LIPITOR [Concomitant]
     Dosage: 40 MG, UNK
  4. PREVACID [Concomitant]
     Dosage: 30 MG, UNK, DR
  5. PLAVIX [Concomitant]
     Dosage: 75 MG, UNK
  6. ASPIRIN [Concomitant]
     Dosage: 81 MG, UNK, ADULT

REACTIONS (1)
  - Drug effect decreased [Unknown]
